FAERS Safety Report 8006176-1 (Version None)
Quarter: 2011Q4

REPORT INFORMATION
  Report Type: 
  Country: None (occurrence: None)
  Receive Date: 20111226
  Receipt Date: 20111220
  Transmission Date: 20120403
  Serious: Yes (Hospitalization)
  Sender: FDA-Public Use
  Company Number: US-VERTEX PHARMACEUTICALS INC.-AE-2011-004977

PATIENT
  Sex: Male
  Weight: 94.432 kg

DRUGS (8)
  1. OXYCODONE HCL [Concomitant]
     Route: 048
  2. CLONAZEPAM [Concomitant]
     Route: 048
  3. ATENOLOL [Concomitant]
     Route: 048
  4. RIBAVIRIN [Concomitant]
     Indication: HEPATITIS C
     Route: 048
     Dates: start: 20111004
  5. VITAMIN D [Concomitant]
     Route: 048
  6. OMEPRAZOLE [Concomitant]
     Route: 048
  7. INCIVEK [Suspect]
     Indication: HEPATITIS C
     Route: 048
     Dates: start: 20111117
  8. PEGASYS [Concomitant]
     Indication: HEPATITIS C
     Route: 058

REACTIONS (2)
  - LABORATORY TEST ABNORMAL [None]
  - PLATELET COUNT DECREASED [None]
